FAERS Safety Report 9071800 (Version 2)
Quarter: 2013Q1

REPORT INFORMATION
  Report Type: Spontaneous
  Country: DE (occurrence: DE)
  Receive Date: 20130129
  Receipt Date: 20130227
  Transmission Date: 20140127
  Serious: Yes (Hospitalization, Other)
  Sender: FDA-Public Use
  Company Number: DE-ROCHE-1184556

PATIENT
  Age: 42 None
  Sex: Male
  Weight: 81 kg

DRUGS (7)
  1. PEGASYS [Suspect]
     Indication: CHRONIC HEPATITIS C
     Route: 065
     Dates: start: 20121107
  2. COPEGUS [Suspect]
     Indication: CHRONIC HEPATITIS C
     Route: 065
     Dates: start: 20121107
  3. INCIVO [Suspect]
     Indication: CHRONIC HEPATITIS C
     Route: 065
     Dates: start: 20121107, end: 20130130
  4. PANTOPRAZOL [Concomitant]
     Route: 065
  5. CITALOPRAM [Concomitant]
     Route: 065
  6. TRUXAL [Concomitant]
     Route: 065
  7. CIPRAMIL [Concomitant]
     Indication: DEPRESSION
     Route: 048
     Dates: start: 20121124

REACTIONS (2)
  - Blood creatinine increased [Recovering/Resolving]
  - Renal failure [Recovered/Resolved]
